FAERS Safety Report 11028037 (Version 2)
Quarter: 2015Q2

REPORT INFORMATION
  Report Type: Spontaneous
  Country: US (occurrence: US)
  Receive Date: 20150414
  Receipt Date: 20150506
  Transmission Date: 20150821
  Serious: Yes (Other)
  Sender: FDA-Public Use
  Company Number: US-GLAXOSMITHKLINE-US2015048521

PATIENT
  Age: 64 Year
  Sex: Female

DRUGS (16)
  1. GABAPENTIN. [Concomitant]
     Active Substance: GABAPENTIN
  2. SUCRALFATE. [Concomitant]
     Active Substance: SUCRALFATE
  3. FLEXERIL [Concomitant]
     Active Substance: CYCLOBENZAPRINE HYDROCHLORIDE
  4. BENLYSTA [Suspect]
     Active Substance: BELIMUMAB
     Indication: SYSTEMIC LUPUS ERYTHEMATOSUS
     Dosage: UNK UNK, U
     Route: 042
     Dates: start: 2012
  5. CLONIDINE. [Concomitant]
     Active Substance: CLONIDINE
  6. CELLCEPT [Concomitant]
     Active Substance: MYCOPHENOLATE MOFETIL\MYCOPHENOLATE MOFETIL HYDROCHLORIDE
  7. VICODIN [Concomitant]
     Active Substance: ACETAMINOPHEN\HYDROCODONE BITARTRATE
  8. ESTRADIOL. [Concomitant]
     Active Substance: ESTRADIOL
  9. METOPROLOL [Concomitant]
     Active Substance: METOPROLOL
  10. REGLAN [Concomitant]
     Active Substance: METOCLOPRAMIDE HYDROCHLORIDE
  11. BENLYSTA [Suspect]
     Active Substance: BELIMUMAB
     Dosage: UNK, U
     Dates: start: 2013, end: 20150203
  12. PREDNISONE. [Concomitant]
     Active Substance: PREDNISONE
  13. LEVOTHYROXINE [Concomitant]
     Active Substance: LEVOTHYROXINE
  14. QUINACRINE [Concomitant]
     Active Substance: QUINACRINE
  15. ASPIRIN. [Concomitant]
     Active Substance: ASPIRIN
  16. LOSARTAN [Concomitant]
     Active Substance: LOSARTAN

REACTIONS (3)
  - Herpes zoster [Not Recovered/Not Resolved]
  - Systemic lupus erythematosus [Unknown]
  - Immunodeficiency [Not Recovered/Not Resolved]

NARRATIVE: CASE EVENT DATE: 201502
